FAERS Safety Report 23966887 (Version 2)
Quarter: 2024Q2

REPORT INFORMATION
  Report Type: Report from Study
  Country: US (occurrence: US)
  Receive Date: 20240612
  Receipt Date: 20240613
  Transmission Date: 20240716
  Serious: Yes (Other)
  Sender: FDA-Public Use
  Company Number: US-JNJFOC-20240613671

PATIENT
  Age: 66 Year
  Sex: Male
  Weight: 78.043 kg

DRUGS (6)
  1. SPRAVATO [Suspect]
     Active Substance: ESKETAMINE
     Indication: Depression
     Dosage: ^^56 MG, 3 TOTAL DOSES^^
     Dates: start: 20200623, end: 20200630
  2. SPRAVATO [Suspect]
     Active Substance: ESKETAMINE
     Dosage: ^^84 MG, 32 TOTAL DOSES^^
     Dates: start: 20200702, end: 20201023
  3. SPRAVATO [Suspect]
     Active Substance: ESKETAMINE
     Dosage: ^^UNSPECIFIED DOSE, 1 TOTAL DOSE^^
     Dates: start: 20201029, end: 20201029
  4. SPRAVATO [Suspect]
     Active Substance: ESKETAMINE
     Dosage: ^^84 MG, 200 TOTAL DOSES^^
     Dates: start: 20201029, end: 20240520
  5. SPRAVATO [Suspect]
     Active Substance: ESKETAMINE
     Dosage: ^^84 MG, 1 TOTAL DOSE^^
     Dates: start: 20240530, end: 20240530
  6. SPRAVATO [Suspect]
     Active Substance: ESKETAMINE
     Dosage: ^^84 MG, 1 TOTAL DOSE^^
     Dates: start: 20240605, end: 20240605

REACTIONS (2)
  - Hallucination [Recovered/Resolved]
  - Sedation [Recovered/Resolved]

NARRATIVE: CASE EVENT DATE: 20240530
